FAERS Safety Report 9167606 (Version 2)
Quarter: 2013Q2

REPORT INFORMATION
  Report Type: Spontaneous
  Country: GB (occurrence: GB)
  Receive Date: 20130318
  Receipt Date: 20130408
  Transmission Date: 20140414
  Serious: Yes (Disabling)
  Sender: FDA-Public Use
  Company Number: GB-JNJFOC-20130105974

PATIENT
  Sex: Male
  Weight: 79 kg

DRUGS (1)
  1. NICORETTE QUICKMIST [Suspect]
     Indication: SMOKING CESSATION THERAPY
     Route: 048
     Dates: start: 201107, end: 201109

REACTIONS (6)
  - Anxiety [Recovering/Resolving]
  - Self-injurious ideation [Recovering/Resolving]
  - Panic attack [Recovering/Resolving]
  - Impaired work ability [Unknown]
  - Pain [Unknown]
  - Dizziness [Unknown]
